FAERS Safety Report 23150865 (Version 1)
Quarter: 2023Q4

REPORT INFORMATION
  Report Type: Spontaneous
  Country: BR (occurrence: BR)
  Receive Date: 20231106
  Receipt Date: 20231106
  Transmission Date: 20240110
  Serious: Yes (Life-Threatening, Other)
  Sender: FDA-Public Use
  Company Number: BR-BoehringerIngelheim-2023-BI-271197

PATIENT
  Age: 64 Year
  Sex: Female
  Weight: 94 kg

DRUGS (11)
  1. CLONIDINE [Suspect]
     Active Substance: CLONIDINE
     Indication: Blood pressure abnormal
     Dosage: 2 DF
     Dates: start: 2007, end: 2009
  2. CLONIDINE [Suspect]
     Active Substance: CLONIDINE
     Dosage: 2 DF
     Dates: start: 2012, end: 2018
  3. CLONIDINE [Suspect]
     Active Substance: CLONIDINE
     Dosage: 2 DF
     Dates: start: 2018, end: 202307
  4. MICARDIS [Concomitant]
     Active Substance: TELMISARTAN
     Indication: Product used for unknown indication
     Dosage: 80 MG/12.5 MG
     Route: 048
  5. SERTRALINE HYDROCHLORIDE [Concomitant]
     Active Substance: SERTRALINE HYDROCHLORIDE
     Indication: Discouragement
     Dosage: 1 DF
     Route: 048
     Dates: start: 2015
  6. SERTRALINE HYDROCHLORIDE [Concomitant]
     Active Substance: SERTRALINE HYDROCHLORIDE
     Indication: Depressed mood
  7. ROSUVASTATIN [Concomitant]
     Active Substance: ROSUVASTATIN
     Indication: Blood cholesterol abnormal
     Dates: start: 2007
  8. CIPROFIBRATE [Concomitant]
     Active Substance: CIPROFIBRATE
     Indication: Blood triglycerides abnormal
     Dosage: 1 DF
     Route: 048
     Dates: start: 2007
  9. HYDRALAZINE HYDROCHLORIDE [Concomitant]
     Active Substance: HYDRALAZINE HYDROCHLORIDE
     Indication: Adverse event
     Route: 048
     Dates: start: 20230814
  10. ALPRAZOLAM [Concomitant]
     Active Substance: ALPRAZOLAM
     Indication: Psychomotor hyperactivity
     Dosage: 2 DF
     Route: 048
  11. TICLOPIDINE [Concomitant]
     Active Substance: TICLOPIDINE
     Indication: Product used for unknown indication
     Dosage: 1 DF
     Route: 048
     Dates: start: 2007

REACTIONS (3)
  - Rebound effect [Unknown]
  - Rebound effect [Unknown]
  - Incorrect route of product administration [Unknown]

NARRATIVE: CASE EVENT DATE: 20230725
